FAERS Safety Report 5613350-8 (Version None)
Quarter: 2008Q1

REPORT INFORMATION
  Report Type: 
  Country: None (occurrence: None)
  Receive Date: 20080129
  Receipt Date: 20080117
  Transmission Date: 20080703
  Serious: Yes (Hospitalization)
  Sender: FDA-Public Use
  Company Number: 2007SP025376

PATIENT
  Age: 58 Year
  Sex: Female
  Weight: 43 kg

DRUGS (7)
  1. CELESTAMINE TAB [Suspect]
     Indication: DRUG USE FOR UNKNOWN INDICATION
     Dosage: 1 DF;PRN;PO
     Route: 048
     Dates: end: 20071116
  2. BERIZYM (BERIZYM 00517401/) [Suspect]
     Indication: DRUG USE FOR UNKNOWN INDICATION
     Dosage: ;PO
     Route: 048
     Dates: end: 20071116
  3. TAKEPRON OD [Concomitant]
  4. NORVASC [Concomitant]
  5. JUVELA N [Concomitant]
  6. SELBEX [Concomitant]
  7. MERISLON [Concomitant]

REACTIONS (2)
  - HEPATIC FUNCTION ABNORMAL [None]
  - MALAISE [None]
